FAERS Safety Report 5290508-1 (Version None)
Quarter: 2007Q2

REPORT INFORMATION
  Report Type: 
  Country: None (occurrence: None)
  Receive Date: 20070405
  Receipt Date: 20070405
  Transmission Date: 20071010
  Serious: Yes (Hospitalization, Disabling)
  Sender: FDA-Public Use
  Company Number: None

PATIENT
  Age: 8 Year
  Sex: Male
  Weight: 22.5 kg

DRUGS (6)
  1. CARIMUNE [Suspect]
     Indication: KAWASAKI'S DISEASE
     Dosage: 48GM  ONCE  IV DRIP
     Route: 041
     Dates: start: 20070301, end: 20070301
  2. ALBURX [Suspect]
     Indication: HYPOALBUMINAEMIA
     Dosage: 50 GM  Q6H  IV BOLUS
     Route: 040
     Dates: start: 20070301, end: 20070302
  3. ASPIRIN [Concomitant]
  4. FLUOXETINE [Concomitant]
  5. FUROSEMIDE [Concomitant]
  6. ACETAMINOPHEN [Concomitant]

REACTIONS (1)
  - HEPATITIS C ANTIBODY POSITIVE [None]
